FAERS Safety Report 12655920 (Version 1)
Quarter: 2016Q3

REPORT INFORMATION
  Report Type: Spontaneous
  Country: US (occurrence: US)
  Receive Date: 20160816
  Receipt Date: 20160816
  Transmission Date: 20161109
  Serious: No
  Sender: FDA-Public Use
  Company Number: US-PFIZER INC-2016387037

PATIENT
  Age: 72 Year
  Sex: Female
  Weight: 76.2 kg

DRUGS (1)
  1. IBRANCE [Suspect]
     Active Substance: PALBOCICLIB
     Indication: BREAST CANCER METASTATIC
     Dosage: 75 MG, 1X/DAY
     Route: 048
     Dates: start: 201607

REACTIONS (2)
  - Nausea [Recovering/Resolving]
  - Hepatic enzyme increased [Unknown]

NARRATIVE: CASE EVENT DATE: 20160812
